FAERS Safety Report 17934529 (Version 1)
Quarter: 2020Q2

REPORT INFORMATION
  Report Type: Spontaneous
  Country: US (occurrence: US)
  Receive Date: 20200623
  Receipt Date: 20200623
  Transmission Date: 20200714
  Serious: Yes (Other)
  Sender: FDA-Public Use
  Company Number: None

PATIENT
  Sex: Male

DRUGS (1)
  1. SOFOSBUVIR/VELSPATASVIR [Suspect]
     Active Substance: SOFOSBUVIR\VELPATASVIR
     Indication: CHRONIC HEPATITIS C
     Dosage: ?          OTHER DOSE:400-100 MG;?
     Route: 048
     Dates: start: 20200401

REACTIONS (6)
  - Fluid retention [None]
  - Dyspnoea [None]
  - Pain [None]
  - Fatigue [None]
  - Somnolence [None]
  - Weight decreased [None]
